FAERS Safety Report 6534187-1 (Version None)
Quarter: 2010Q1

REPORT INFORMATION
  Report Type: 
  Country: None (occurrence: None)
  Receive Date: 20100112
  Receipt Date: 20100107
  Transmission Date: 20100710
  Serious: Yes (Hospitalization, Other)
  Sender: FDA-Public Use
  Company Number: JP-B.I. PHARMACEUTICALS,INC./RIDGEFIELD-2010-BP-00153NB

PATIENT
  Sex: Female
  Weight: 64 kg

DRUGS (8)
  1. MICARDIS [Suspect]
     Indication: HYPERTENSION
     Dosage: 20 MG
     Route: 048
     Dates: start: 20060513
  2. AMAYRL [Concomitant]
     Indication: DIABETES MELLITUS
     Dosage: 2 MG
     Route: 048
     Dates: start: 20060213
  3. TOWARAT-CR [Concomitant]
     Indication: HYPERTENSION
     Dosage: 40 MG
     Route: 048
     Dates: start: 20060213
  4. BASTAMION [Concomitant]
     Indication: DIABETES MELLITUS
     Dosage: 0.9 MG
     Route: 048
     Dates: start: 20060213
  5. HALCION [Concomitant]
     Indication: INSOMNIA
     Dosage: 0.25 MG
     Route: 048
     Dates: end: 20080910
  6. MEPTIN [Concomitant]
     Indication: BRONCHITIS CHRONIC
     Dosage: 50 MCG
     Route: 048
     Dates: start: 20060526
  7. NOVORAPID MIX [Concomitant]
     Indication: DIABETES MELLITUS
     Dosage: 14 U
     Route: 023
     Dates: start: 20090401
  8. LANIZAC [Concomitant]
     Indication: GASTRITIS
     Dosage: 150 MG
     Route: 048
     Dates: start: 20080417

REACTIONS (2)
  - DIABETES MELLITUS [None]
  - HEPATIC CIRRHOSIS [None]
